FAERS Safety Report 5905932-0 (Version None)
Quarter: 2008Q4

REPORT INFORMATION
  Report Type: 
  Country: None (occurrence: None)
  Receive Date: 20081001
  Receipt Date: 20081001
  Transmission Date: 20090506
  Serious: Yes (Other)
  Sender: FDA-Public Use
  Company Number: None

PATIENT
  Age: 42 Year
  Sex: Female
  Weight: 52.1637 kg

DRUGS (1)
  1. OMEPRAZOLE [Suspect]
     Indication: FLATULENCE

REACTIONS (2)
  - RECTAL HAEMORRHAGE [None]
  - STRESS [None]
